FAERS Safety Report 19061406 (Version 1)
Quarter: 2021Q1

REPORT INFORMATION
  Report Type: Report from Study
  Country: None (occurrence: SE)
  Receive Date: 20210326
  Receipt Date: 20210326
  Transmission Date: 20210420
  Serious: Yes (Hospitalization)
  Sender: FDA-Public Use
  Company Number: SE-ABBVIE-21K-150-3829908-00

PATIENT
  Sex: Male

DRUGS (2)
  1. DUODOPA [Suspect]
     Active Substance: CARBIDOPA\LEVODOPA
     Dosage: CURRENT DOSAGE: MD: 3.5 ML, CD: 2.4 ML/H, ED: 0.5 ML. THERAPY DURATION: REMAINS AT 16H.
     Route: 050
     Dates: start: 202103
  2. DUODOPA [Suspect]
     Active Substance: CARBIDOPA\LEVODOPA
     Indication: PARKINSON^S DISEASE
     Route: 050
     Dates: start: 20120212

REACTIONS (4)
  - Confusional state [Unknown]
  - On and off phenomenon [Unknown]
  - Device dislocation [Recovering/Resolving]
  - Device loosening [Recovering/Resolving]
